FAERS Safety Report 6502972-8 (Version None)
Quarter: 2009Q4

REPORT INFORMATION
  Report Type: 
  Country: None (occurrence: None)
  Receive Date: 20091217
  Receipt Date: 20091210
  Transmission Date: 20100525
  Serious: Yes (Hospitalization)
  Sender: FDA-Public Use
  Company Number: PHEH2009US12280

PATIENT
  Sex: Female

DRUGS (1)
  1. EXJADE [Suspect]
     Indication: IRON OVERLOAD
     Dosage: 2000 UNK, DAILY
     Route: 048
     Dates: start: 20090626, end: 20090917

REACTIONS (2)
  - BONE MARROW TRANSPLANT [None]
  - DIARRHOEA [None]
